FAERS Safety Report 5118882-7 (Version None)
Quarter: 2006Q3

REPORT INFORMATION
  Report Type: 
  Country: None (occurrence: None)
  Receive Date: 20060929
  Receipt Date: 20060929
  Transmission Date: 20061208
  Serious: Yes (Other)
  Sender: FDA-Public Use
  Company Number: None

PATIENT
  Age: 54 Year
  Sex: Female
  Weight: 63.9572 kg

DRUGS (2)
  1. ADVAIR DISKUS 250/50 [Suspect]
     Indication: ASTHMA
     Dosage: 1 INHALATION BID INTRATRACHE
     Route: 039
     Dates: start: 20040221, end: 20050928
  2. ADVAIR DISKUS 250/50 [Suspect]
     Indication: HYPERSENSITIVITY
     Dosage: 1 INHALATION BID INTRATRACHE
     Route: 039
     Dates: start: 20040221, end: 20050928

REACTIONS (3)
  - BENIGN NEOPLASM [None]
  - DYSPHONIA [None]
  - VOCAL CORD NEOPLASM [None]
